FAERS Safety Report 8249414-2 (Version None)
Quarter: 2012Q2

REPORT INFORMATION
  Report Type: 
  Country: None (occurrence: None)
  Receive Date: 20120402
  Receipt Date: 20120325
  Transmission Date: 20120825
  Serious: Yes (Other)
  Sender: FDA-Public Use
  Company Number: US-AMGEN-USASP2012019313

PATIENT
  Age: 72 Year
  Sex: Female

DRUGS (1)
  1. ENBREL [Suspect]
     Indication: RHEUMATOID ARTHRITIS
     Dosage: 50 MG, QWK
     Dates: start: 20080301, end: 20110101

REACTIONS (10)
  - VOMITING [None]
  - DIZZINESS [None]
  - DIABETES MELLITUS [None]
  - DRUG INEFFECTIVE [None]
  - ROAD TRAFFIC ACCIDENT [None]
  - MASTICATION DISORDER [None]
  - TEMPORAL ARTERITIS [None]
  - PAIN [None]
  - CHILLS [None]
  - BACK INJURY [None]
